FAERS Safety Report 19613241 (Version 1)
Quarter: 2021Q3

REPORT INFORMATION
  Report Type: Spontaneous
  Country: US (occurrence: US)
  Receive Date: 20210726
  Receipt Date: 20210726
  Transmission Date: 20211014
  Serious: No
  Sender: FDA-Public Use
  Company Number: None

PATIENT
  Sex: Female
  Weight: 71.1 kg

DRUGS (22)
  1. ATORVASTAIN [Concomitant]
     Active Substance: ATORVASTATIN
  2. LEVEMIR [Concomitant]
     Active Substance: INSULIN DETEMIR
  3. OFLOXACIN. [Concomitant]
     Active Substance: OFLOXACIN
  4. PROCHLORPERAZINE. [Concomitant]
     Active Substance: PROCHLORPERAZINE
  5. VOLTAREN [Concomitant]
     Active Substance: DICLOFENAC SODIUM
  6. FIBERCON [Concomitant]
     Active Substance: CALCIUM POLYCARBOPHIL
  7. COENZYME Q10 [Concomitant]
     Active Substance: DIETARY SUPPLEMENT\UBIDECARENONE
  8. JANUVIA [Concomitant]
     Active Substance: SITAGLIPTIN PHOSPHATE
  9. LEVETIRACETAM. [Concomitant]
     Active Substance: LEVETIRACETAM
  10. PREDNISONE. [Concomitant]
     Active Substance: PREDNISONE
  11. ZOFRAN [Concomitant]
     Active Substance: ONDANSETRON HYDROCHLORIDE
  12. TEMOZOLOMIDE. [Suspect]
     Active Substance: TEMOZOLOMIDE
     Indication: BRAIN NEOPLASM MALIGNANT
     Route: 048
  13. ATROVENT [Concomitant]
     Active Substance: IPRATROPIUM BROMIDE
  14. DOXYLAMINE [Concomitant]
     Active Substance: DOXYLAMINE
  15. LEVOTHYROXINE. [Concomitant]
     Active Substance: LEVOTHYROXINE
  16. VIAMIN C, E?ZN?COPPE?LUTEIN [Concomitant]
  17. BIOTIN [Concomitant]
     Active Substance: BIOTIN
  18. GLIPIZIDE. [Concomitant]
     Active Substance: GLIPIZIDE
  19. TEMOZOLOMIDE. [Suspect]
     Active Substance: TEMOZOLOMIDE
     Indication: BRAIN NEOPLASM MALIGNANT
     Route: 048
  20. LASIX [Concomitant]
     Active Substance: FUROSEMIDE
  21. LISINOPRIL. [Concomitant]
     Active Substance: LISINOPRIL
  22. METOPROLOL. [Concomitant]
     Active Substance: METOPROLOL

REACTIONS (1)
  - Hospice care [None]
